FAERS Safety Report 19380908 (Version 3)
Quarter: 2021Q4

REPORT INFORMATION
  Report Type: Report from Study
  Country: FR (occurrence: FR)
  Receive Date: 20210607
  Receipt Date: 20211022
  Transmission Date: 20220303
  Serious: Yes (Hospitalization)
  Sender: FDA-Public Use
  Company Number: FR-GLAXOSMITHKLINE-FR2020GSK257091

PATIENT
  Age: 72 Year
  Sex: Female
  Weight: 55 kg

DRUGS (20)
  1. DOSTARLIMAB [Suspect]
     Active Substance: DOSTARLIMAB
     Indication: Ovarian cancer
     Dosage: 500 MG
     Dates: start: 20201123, end: 20201123
  2. DOSTARLIMAB [Suspect]
     Active Substance: DOSTARLIMAB
     Dosage: 500 MG
     Dates: start: 20201214, end: 20201214
  3. CARBOPLATIN [Suspect]
     Active Substance: CARBOPLATIN
     Indication: Ovarian cancer
     Dosage: 5 AUC
     Route: 042
     Dates: start: 20201030, end: 20201030
  4. CARBOPLATIN [Suspect]
     Active Substance: CARBOPLATIN
     Dosage: 5 AUC
     Route: 042
     Dates: start: 20201214, end: 20201214
  5. PACLITAXEL [Suspect]
     Active Substance: PACLITAXEL
     Indication: Ovarian cancer
     Dosage: 276 MG
     Route: 042
     Dates: start: 20201030, end: 20201030
  6. PACLITAXEL [Suspect]
     Active Substance: PACLITAXEL
     Dosage: 276 MG
     Route: 042
     Dates: start: 20201214, end: 20201214
  7. BEVACIZUMAB [Suspect]
     Active Substance: BEVACIZUMAB
     Indication: Ovarian cancer
     Dosage: 838 MG (15 MG/KG) IN 145,50 ML
     Route: 042
     Dates: start: 20201123, end: 20201123
  8. BEVACIZUMAB [Suspect]
     Active Substance: BEVACIZUMAB
     Dosage: 838 MG/KG
     Route: 042
     Dates: start: 20201214, end: 20201214
  9. CISPLATIN [Concomitant]
     Active Substance: CISPLATIN
     Dosage: UNK
  10. DOCETAXEL [Concomitant]
     Active Substance: DOCETAXEL
     Dosage: UNK
  11. PREDNISOLONE [Concomitant]
     Active Substance: PREDNISOLONE
     Indication: Prophylactic chemotherapy
     Dosage: 120 MG, QD
     Route: 048
     Dates: start: 20201213, end: 20201214
  12. EMEND [Concomitant]
     Active Substance: APREPITANT
     Indication: Prophylactic chemotherapy
     Dosage: 125 MG, QD
     Route: 048
     Dates: start: 20201214, end: 20201214
  13. EMEND [Concomitant]
     Active Substance: APREPITANT
     Dosage: 80 MG, QD
     Route: 048
     Dates: start: 20201215, end: 20201216
  14. ONDANSETRON [Concomitant]
     Active Substance: ONDANSETRON
     Indication: Prophylactic chemotherapy
     Dosage: 8 MG, BID
     Route: 048
     Dates: start: 20201214, end: 20201214
  15. CETIRIZINE HYDROCHLORIDE [Concomitant]
     Active Substance: CETIRIZINE HYDROCHLORIDE
     Indication: Prophylactic chemotherapy
     Dosage: 10 MG, QD
     Route: 048
     Dates: start: 20201214, end: 20201214
  16. FILGRASTIM [Concomitant]
     Active Substance: FILGRASTIM
     Indication: Prophylactic chemotherapy
     Dosage: 30 DF (OTHER), QD
     Route: 058
     Dates: start: 20201217, end: 20201221
  17. EBASTINE [Concomitant]
     Active Substance: EBASTINE
     Indication: Rash
     Dosage: 10 MG, QD
     Route: 048
     Dates: start: 20201216, end: 20201221
  18. EBASTINE [Concomitant]
     Active Substance: EBASTINE
     Indication: Dermatitis exfoliative generalised
     Dosage: 10 MG, TID
     Route: 048
     Dates: start: 20201221, end: 20201228
  19. EBASTINE [Concomitant]
     Active Substance: EBASTINE
     Dosage: 10 MG, TID
     Route: 048
     Dates: start: 20201228, end: 20210106
  20. BETAMETHASONE VALERATE [Concomitant]
     Active Substance: BETAMETHASONE VALERATE
     Indication: Rash
     Dosage: 30 MG, QD
     Route: 003
     Dates: start: 20201221, end: 20201228

REACTIONS (1)
  - Dermatitis exfoliative generalised [Recovered/Resolved]

NARRATIVE: CASE EVENT DATE: 20201228
